FAERS Safety Report 14788143 (Version 3)
Quarter: 2018Q3

REPORT INFORMATION
  Report Type: Spontaneous
  Country: US (occurrence: US)
  Receive Date: 20180422
  Receipt Date: 20180712
  Transmission Date: 20181010
  Serious: Yes (Hospitalization, Other)
  Sender: FDA-Public Use
  Company Number: US-B.I. PHARMACEUTICALS,INC./RIDGEFIELD-2018-BI-020841

PATIENT
  Age: 69 Year
  Sex: Male
  Weight: 93 kg

DRUGS (8)
  1. SPIRIVA [Suspect]
     Active Substance: TIOTROPIUM BROMIDE MONOHYDRATE
     Indication: DYSPNOEA
     Route: 065
     Dates: start: 201803, end: 201803
  2. TYVASO [Suspect]
     Active Substance: TREPROSTINIL
     Indication: PULMONARY HYPERTENSION
     Dosage: STRENGTH: 0.6MG/ML; FORM: INHALATION GAS; UNIT DOSE: 18?54MCG
     Route: 055
     Dates: start: 20180328, end: 20180330
  3. REVATIO [Suspect]
     Active Substance: SILDENAFIL CITRATE
     Indication: PULMONARY HYPERTENSION
     Route: 065
     Dates: start: 201703, end: 201803
  4. SPIRIVA [Suspect]
     Active Substance: TIOTROPIUM BROMIDE MONOHYDRATE
     Route: 065
     Dates: start: 20180402
  5. TYVASO [Suspect]
     Active Substance: TREPROSTINIL
     Dosage: STRENGTH: 0.6MG/ML; FORM: INHALATION GAS; UNIT DOSE: 18?57MCG
     Route: 055
     Dates: start: 20180331
  6. HUMIRA [Suspect]
     Active Substance: ADALIMUMAB
     Indication: PSORIASIS
     Route: 058
     Dates: start: 2008, end: 2008
  7. SPIRIVA [Suspect]
     Active Substance: TIOTROPIUM BROMIDE MONOHYDRATE
     Route: 065
     Dates: start: 20180331
  8. HUMIRA [Suspect]
     Active Substance: ADALIMUMAB
     Indication: PSORIATIC ARTHROPATHY

REACTIONS (9)
  - Peripheral swelling [Unknown]
  - Dyspnoea [Recovering/Resolving]
  - Oedema peripheral [Unknown]
  - Headache [Unknown]
  - Pulmonary hypertension [Not Recovered/Not Resolved]
  - Psoriasis [Unknown]
  - Hypersomnia [Unknown]
  - Drug dose omission [Unknown]
  - Urinary incontinence [Unknown]

NARRATIVE: CASE EVENT DATE: 201712
